FAERS Safety Report 12717385 (Version 4)
Quarter: 2017Q2

REPORT INFORMATION
  Report Type: Spontaneous
  Country: JP (occurrence: JP)
  Receive Date: 20160906
  Receipt Date: 20170627
  Transmission Date: 20170830
  Serious: Yes (Hospitalization, Other)
  Sender: FDA-Public Use
  Company Number: JP-GLAXOSMITHKLINE-JP2016JPN113598

PATIENT
  Age: 75 Year
  Sex: Male
  Weight: 45 kg

DRUGS (17)
  1. OLMETEC [Concomitant]
     Active Substance: OLMESARTAN MEDOXOMIL
     Dosage: UNK
  2. SELBEX [Concomitant]
     Active Substance: TEPRENONE
     Dosage: UNK
  3. JANUVIA [Concomitant]
     Active Substance: SITAGLIPTIN PHOSPHATE
     Dosage: UNK
  4. VOGLIBOSE [Concomitant]
     Active Substance: VOGLIBOSE
     Dosage: UNK
  5. ALDOMET [Concomitant]
     Active Substance: METHYLDOPA
     Dosage: UNK
  6. VALTREX [Suspect]
     Active Substance: VALACYCLOVIR HYDROCHLORIDE
     Indication: HERPES ZOSTER
     Dosage: 1000 MG, TID
     Route: 048
     Dates: start: 20160730, end: 20160804
  7. AMLODIPINE [Concomitant]
     Active Substance: AMLODIPINE BESYLATE
     Dosage: UNK
  8. BISOPROLOL FUMARATE. [Concomitant]
     Active Substance: BISOPROLOL FUMARATE
     Dosage: UNK
  9. BROTIZOLAM [Concomitant]
     Active Substance: BROTIZOLAM
     Dosage: UNK
  10. LOXOPROFEN SODIUM HYDRATE [Concomitant]
     Active Substance: LOXOPROFEN SODIUM DIHYDRATE
     Indication: PAIN
     Dosage: UNK
     Dates: start: 20160730, end: 20160804
  11. GRANDAXIN [Concomitant]
     Active Substance: TOFISOPAM
     Dosage: UNK
  12. CARDENALIN [Concomitant]
     Active Substance: DOXAZOSIN MESYLATE
     Dosage: UNK
  13. FAMOTIDINE. [Concomitant]
     Active Substance: FAMOTIDINE
     Dosage: UNK
  14. BERAPROST SODIUM [Concomitant]
     Active Substance: BERAPROST SODIUM
     Dosage: UNK
  15. WARFARIN (JAPANESE TRADENAME) [Concomitant]
     Dosage: UNK
  16. SARPOGRELATE HYDROCHLORIDE [Concomitant]
     Active Substance: SARPOGRELATE HYDROCHLORIDE
     Dosage: UNK
  17. TICLOPIDINE HYDROCHLORIDE. [Concomitant]
     Active Substance: TICLOPIDINE HYDROCHLORIDE
     Dosage: UNK

REACTIONS (21)
  - Disorientation [Not Recovered/Not Resolved]
  - Amnesia [Not Recovered/Not Resolved]
  - Depressed level of consciousness [Recovering/Resolving]
  - Personality change [Not Recovered/Not Resolved]
  - CSF mononuclear cell count increased [Recovered/Resolved]
  - Restlessness [Recovered/Resolved with Sequelae]
  - Acute kidney injury [Recovered/Resolved]
  - Encephalopathy [Recovered/Resolved with Sequelae]
  - Mental impairment [Recovered/Resolved with Sequelae]
  - Polyuria [Unknown]
  - Pyrexia [Unknown]
  - Gait disturbance [Not Recovered/Not Resolved]
  - Dyskinesia [Recovering/Resolving]
  - Dysarthria [Unknown]
  - Encephalitis viral [Recovered/Resolved with Sequelae]
  - Tremor [Recovering/Resolving]
  - CSF cell count increased [Recovered/Resolved]
  - Angina pectoris [Unknown]
  - Altered state of consciousness [Recovering/Resolving]
  - CSF protein increased [Recovering/Resolving]
  - Agitation [Not Recovered/Not Resolved]

NARRATIVE: CASE EVENT DATE: 201608
